FAERS Safety Report 6904156-8 (Version None)
Quarter: 2010Q3

REPORT INFORMATION
  Report Type: 
  Country: None (occurrence: None)
  Receive Date: 20100804
  Receipt Date: 20090319
  Transmission Date: 20110219
  Serious: No
  Sender: FDA-Public Use
  Company Number: US-PFIZER INC-2009159964

PATIENT
  Sex: Female
  Weight: 87.1 kg

DRUGS (4)
  1. LYRICA [Suspect]
     Indication: NEURALGIA
     Dosage: 75 MG, 4X/DAY
     Dates: start: 20080601, end: 20090113
  2. LYRICA [Suspect]
     Indication: COMPLEX REGIONAL PAIN SYNDROME
  3. FLONASE [Concomitant]
     Indication: HYPERSENSITIVITY
     Dosage: UNK
  4. NEXIUM [Concomitant]
     Indication: HYPERSENSITIVITY
     Dosage: UNK

REACTIONS (11)
  - BALANCE DISORDER [None]
  - COGNITIVE DISORDER [None]
  - CONFUSIONAL STATE [None]
  - DISTURBANCE IN ATTENTION [None]
  - DIZZINESS [None]
  - DYSPNOEA [None]
  - INCREASED APPETITE [None]
  - INSOMNIA [None]
  - MEMORY IMPAIRMENT [None]
  - SOMNOLENCE [None]
  - WEIGHT INCREASED [None]
